FAERS Safety Report 10482555 (Version 1)
Quarter: 2014Q3

REPORT INFORMATION
  Report Type: Spontaneous
  Country: IT (occurrence: IT)
  Receive Date: 20140929
  Receipt Date: 20140929
  Transmission Date: 20150326
  Serious: Yes (Hospitalization)
  Sender: FDA-Public Use
  Company Number: IT-ABBVIE-14P-083-1286981-00

PATIENT
  Age: 31 Year
  Sex: Male

DRUGS (4)
  1. VALPROATE SODIUM. [Suspect]
     Active Substance: VALPROATE SODIUM
     Indication: CONVULSION
  2. CLOZAPINE. [Suspect]
     Active Substance: CLOZAPINE
     Dosage: AT BEDTIME
  3. CLOZAPINE. [Suspect]
     Active Substance: CLOZAPINE
     Indication: PRODUCT USED FOR UNKNOWN INDICATION
     Dosage: AT BEDTIME
  4. CLOZAPINE. [Suspect]
     Active Substance: CLOZAPINE
     Dosage: IN MORNING

REACTIONS (1)
  - Pericarditis [Recovered/Resolved]
